FAERS Safety Report 5766247-7 (Version None)
Quarter: 2008Q2

REPORT INFORMATION
  Report Type: 
  Country: None (occurrence: None)
  Receive Date: 20080611
  Receipt Date: 20080517
  Transmission Date: 20081010
  Serious: No
  Sender: FDA-Public Use
  Company Number: US-ABBOTT-08P-163-0452428-00

PATIENT
  Sex: Male
  Weight: 63.56 kg

DRUGS (4)
  1. HUMIRA [Suspect]
     Indication: CROHN'S DISEASE
     Route: 058
     Dates: start: 20080503, end: 20080503
  2. HUMIRA [Suspect]
     Route: 058
     Dates: start: 20080517, end: 20080517
  3. HUMIRA [Suspect]
  4. PREDNISONE TAB [Concomitant]
     Indication: CROHN'S DISEASE
     Dosage: 20 MG DAILY
     Route: 048

REACTIONS (4)
  - BACK INJURY [None]
  - JOINT SPRAIN [None]
  - NECK INJURY [None]
  - ROAD TRAFFIC ACCIDENT [None]
